FAERS Safety Report 22170353 (Version 1)
Quarter: 2023Q2

REPORT INFORMATION
  Report Type: Report from Study
  Country: NL (occurrence: None)
  Receive Date: 20230404
  Receipt Date: 20230404
  Transmission Date: 20230721
  Serious: Yes (Hospitalization)
  Sender: FDA-Public Use
  Company Number: NL-ROCHE-3321048

PATIENT
  Age: 73 Year
  Sex: Female

DRUGS (2)
  1. ATEZOLIZUMAB [Suspect]
     Active Substance: ATEZOLIZUMAB
     Indication: Breast cancer
     Dosage: MOST RECENT DOSE WAS ADMINISTERED ON 23/FEB/2023, 3* PMND
     Route: 041
  2. PACLITAXEL [Suspect]
     Active Substance: PACLITAXEL
     Indication: Breast cancer
     Dosage: MOST RECENT DOSE WAS ADMINISTERED ON 16/FEB/2023, 1*PMND
     Route: 042

REACTIONS (1)
  - Myelopathy [Unknown]

NARRATIVE: CASE EVENT DATE: 20230328
